FAERS Safety Report 15541511 (Version 1)
Quarter: 2018Q4

REPORT INFORMATION
  Report Type: Spontaneous
  Country: US (occurrence: US)
  Receive Date: 20181023
  Receipt Date: 20181023
  Transmission Date: 20190205
  Serious: No
  Sender: FDA-Public Use
  Company Number: US-MYLANLABS-2018M1075560

PATIENT
  Age: 79 Year
  Sex: Female

DRUGS (1)
  1. BUTORPHANOL TARTRATE NASAL SOLUTION, USP [Suspect]
     Active Substance: BUTORPHANOL TARTRATE
     Indication: PRODUCT USED FOR UNKNOWN INDICATION
     Dosage: UNK
     Route: 045

REACTIONS (3)
  - Dizziness [Recovering/Resolving]
  - Product quality issue [Recovered/Resolved]
  - Wrong dose [Unknown]

NARRATIVE: CASE EVENT DATE: 20181010
